FAERS Safety Report 10350675 (Version 2)
Quarter: 2014Q3

REPORT INFORMATION
  Report Type: Spontaneous
  Country: US (occurrence: US)
  Receive Date: 20140730
  Receipt Date: 20140908
  Transmission Date: 20150326
  Serious: Yes (Other)
  Sender: FDA-Public Use
  Company Number: CHPA2014US009908

PATIENT
  Age: 52 Year
  Sex: Male

DRUGS (2)
  1. PRIVATE LABEL STRENGTH UNKNOWN [Suspect]
     Active Substance: NICOTINE
     Indication: OFF LABEL USE
  2. PRIVATE LABEL STRENGTH UNKNOWN [Suspect]
     Active Substance: NICOTINE
     Indication: AGITATION
     Dosage: 1 DF, QD
     Route: 062
     Dates: start: 2000

REACTIONS (2)
  - Cardiac failure congestive [Not Recovered/Not Resolved]
  - Mental disorder [Unknown]
